FAERS Safety Report 5317108-9 (Version None)
Quarter: 2007Q2

REPORT INFORMATION
  Report Type: 
  Country: None (occurrence: None)
  Receive Date: 20070504
  Receipt Date: 20070420
  Transmission Date: 20071010
  Serious: Yes (Life-Threatening)
  Sender: FDA-Public Use
  Company Number: JP-ROCHE-432925

PATIENT
  Age: 14 Year
  Sex: Male

DRUGS (8)
  1. TAMIFLU [Suspect]
     Route: 048
     Dates: start: 20040126, end: 20040126
  2. DOMPERIDONE [Concomitant]
     Dosage: REPORTED AS PERORIC.
     Route: 048
     Dates: start: 20040126, end: 20040131
  3. ALESION [Concomitant]
     Route: 048
     Dates: start: 20040126, end: 20040131
  4. COUGHCODE [Concomitant]
     Dosage: REPORTED AS COUGHCODE-N( ).
     Route: 048
     Dates: start: 20040126, end: 20040131
  5. ISALON [Concomitant]
     Route: 048
     Dates: start: 20040126, end: 20040131
  6. LEVOFLOXACIN [Concomitant]
     Route: 048
  7. SOLITA-T [Concomitant]
     Route: 041
     Dates: start: 20040126, end: 20040126
  8. PRIMPERAN INJ [Concomitant]
     Route: 041
     Dates: start: 20040126, end: 20040126

REACTIONS (2)
  - CONFUSIONAL STATE [None]
  - RESTLESSNESS [None]
